FAERS Safety Report 6856264-8 (Version None)
Quarter: 2010Q3

REPORT INFORMATION
  Report Type: 
  Country: None (occurrence: None)
  Receive Date: 20100719
  Receipt Date: 20100706
  Transmission Date: 20110219
  Serious: Yes (Hospitalization, Other)
  Sender: FDA-Public Use
  Company Number: PHHY2010MX38864

PATIENT
  Sex: Female

DRUGS (1)
  1. ACLASTA [Suspect]
     Indication: OSTEOPOROSIS
     Dosage: 5 MG A YEAR
     Route: 042
     Dates: start: 20100201

REACTIONS (4)
  - ABASIA [None]
  - ARRHYTHMIA [None]
  - HYPOAESTHESIA [None]
  - TREMOR [None]
